FAERS Safety Report 6196155-1 (Version None)
Quarter: 2009Q2

REPORT INFORMATION
  Report Type: 
  Country: None (occurrence: None)
  Receive Date: 20090520
  Receipt Date: 20090511
  Transmission Date: 20091009
  Serious: Yes (Hospitalization)
  Sender: FDA-Public Use
  Company Number: US-BIOGENIDEC-2009BI014385

PATIENT
  Age: 67 Year
  Sex: Male

DRUGS (4)
  1. AVONEX [Suspect]
     Indication: MULTIPLE SCLEROSIS
     Route: 030
     Dates: start: 19960601, end: 20060201
  2. AVONEX [Suspect]
     Route: 030
     Dates: start: 20060701, end: 20070401
  3. AVONEX [Suspect]
     Route: 030
     Dates: start: 20070701, end: 20070901
  4. AVONEX [Suspect]
     Route: 030
     Dates: start: 20080101, end: 20081101

REACTIONS (6)
  - DECREASED IMMUNE RESPONSIVENESS [None]
  - DECUBITUS ULCER [None]
  - DIARRHOEA [None]
  - FALL [None]
  - HIP FRACTURE [None]
  - OSTEOMYELITIS [None]
